FAERS Safety Report 23040396 (Version 1)
Quarter: 2023Q4

REPORT INFORMATION
  Report Type: Spontaneous
  Country: CA (occurrence: CA)
  Receive Date: 20231006
  Receipt Date: 20231006
  Transmission Date: 20240110
  Serious: Yes (Life-Threatening, Hospitalization)
  Sender: FDA-Public Use
  Company Number: CA-PFIZER INC-202300311790

PATIENT
  Age: 47 Year
  Sex: Male
  Weight: 74 kg

DRUGS (32)
  1. HEPARIN SODIUM [Suspect]
     Active Substance: HEPARIN SODIUM
     Indication: Thrombosis
     Dosage: 20000.0 IU
     Route: 042
  2. ACETAMINOPHEN [Concomitant]
     Active Substance: ACETAMINOPHEN
  3. CASPOFUNGIN [Concomitant]
     Active Substance: CASPOFUNGIN
  4. CEFTAZIDIME [Concomitant]
     Active Substance: CEFTAZIDIME
  5. DEXMEDETOMIDINE [Concomitant]
     Active Substance: DEXMEDETOMIDINE
  6. DIMENHYDRINATE [Concomitant]
     Active Substance: DIMENHYDRINATE
  7. EPINEPHRINE [Concomitant]
     Active Substance: EPINEPHRINE
  8. FENTANYL [Concomitant]
     Active Substance: FENTANYL
  9. FILGRASTIM [Concomitant]
     Active Substance: FILGRASTIM
  10. FUROSEMIDE [Concomitant]
     Active Substance: FUROSEMIDE
     Route: 065
  11. HYDROCORTISONE [Concomitant]
     Active Substance: HYDROCORTISONE
  12. HYDROMORPHONE [Concomitant]
     Active Substance: HYDROMORPHONE
  13. INSULIN NOS [Concomitant]
     Active Substance: INSULIN NOS
  14. POTASSIUM CHLORIDE [Concomitant]
     Active Substance: POTASSIUM CHLORIDE
  15. MEROPENEM [Concomitant]
     Active Substance: MEROPENEM
  16. METOCLOPRAMIDE [Concomitant]
     Active Substance: METOCLOPRAMIDE
  17. MIDAZOLAM [Concomitant]
     Active Substance: MIDAZOLAM
  18. MITOMYCIN [Concomitant]
     Active Substance: MITOMYCIN
  19. MORPHINE [Concomitant]
     Active Substance: MORPHINE
  20. NALBUPHINE HYDROCHLORIDE [Concomitant]
     Active Substance: NALBUPHINE HYDROCHLORIDE
  21. NALOXONE [Concomitant]
     Active Substance: NALOXONE
  22. NOREPINEPHRINE [Concomitant]
     Active Substance: NOREPINEPHRINE
  23. NYSTATIN [Concomitant]
     Active Substance: NYSTATIN
  24. ONDANSETRON [Concomitant]
     Active Substance: ONDANSETRON
  25. PIPERACILLIN SODIUM\TAZOBACTAM SODIUM [Concomitant]
     Active Substance: PIPERACILLIN SODIUM\TAZOBACTAM SODIUM
  26. PROPOFOL [Concomitant]
     Active Substance: PROPOFOL
     Route: 065
  27. QUETIAPINE [Concomitant]
     Active Substance: QUETIAPINE
  28. ROCURONIUM [Concomitant]
     Active Substance: ROCURONIUM BROMIDE
  29. TOBRAMYCIN [Concomitant]
     Active Substance: TOBRAMYCIN
  30. VANCOMYCIN [Concomitant]
     Active Substance: VANCOMYCIN
  31. VASOPRESSIN [Concomitant]
     Active Substance: VASOPRESSIN
  32. VITAMIN K [Concomitant]
     Active Substance: PHYTONADIONE

REACTIONS (2)
  - Haemodynamic instability [Recovered/Resolved]
  - Intra-abdominal haemorrhage [Recovered/Resolved]
